FAERS Safety Report 16383995 (Version 1)
Quarter: 2019Q2

REPORT INFORMATION
  Report Type: Spontaneous
  Country: US (occurrence: US)
  Receive Date: 20190426
  Receipt Date: 20190426
  Transmission Date: 20190711
  Serious: Yes (Hospitalization)
  Sender: FDA-Public Use
  Company Number: None

PATIENT
  Age: 70 Year
  Sex: Female
  Weight: 98.9 kg

DRUGS (1)
  1. REGORAFENIB. [Suspect]
     Active Substance: REGORAFENIB
     Indication: COLON CANCER METASTATIC
     Route: 048
     Dates: start: 20190410, end: 20190424

REACTIONS (10)
  - Decreased appetite [None]
  - Heart rate decreased [None]
  - Arthralgia [None]
  - Tachycardia [None]
  - Nausea [None]
  - Dehydration [None]
  - Headache [None]
  - Hypokalaemia [None]
  - Dizziness [None]
  - Muscular weakness [None]

NARRATIVE: CASE EVENT DATE: 20190425
